FAERS Safety Report 9441538 (Version 2)
Quarter: 2013Q3

REPORT INFORMATION
  Report Type: Spontaneous
  Country: US (occurrence: US)
  Receive Date: 20130805
  Receipt Date: 20130926
  Transmission Date: 20140515
  Serious: Yes (Hospitalization)
  Sender: FDA-Public Use
  Company Number: US-UCBSA-093439

PATIENT
  Age: 46 Year
  Sex: Male
  Weight: 107.3 kg

DRUGS (13)
  1. KEPPRA XR [Suspect]
     Dates: start: 2008
  2. DILANTIN [Suspect]
     Dates: start: 2007
  3. VIIBRYD [Concomitant]
     Indication: DEPRESSION
     Dosage: UNKNOWN
  4. VIIBRYD [Concomitant]
     Indication: ANXIETY
     Dosage: UNKNOWN
  5. NOVOLOG [Concomitant]
     Dosage: 5 UNITS WITH EACH MEAL
  6. INDOMETHACIN [Concomitant]
     Indication: GOUT
     Dosage: UNKNOWN
  7. LEVEMIR [Concomitant]
     Dosage: DOSE: 50 UNITS BD
  8. HUMILIN [Concomitant]
     Dosage: UNKNOWN
  9. METFORMIN [Concomitant]
  10. GLIPIZIDE [Concomitant]
     Dosage: DOSE: 1 TABLET BD
  11. REMERON [Concomitant]
     Indication: DEPRESSION
     Dosage: UNKNOWN
  12. REMERON [Concomitant]
     Indication: ANXIETY
     Dosage: UNKNOWN
  13. BENICAR [Concomitant]
     Indication: HYPERTENSION
     Dates: start: 2007

REACTIONS (10)
  - Gait disturbance [Not Recovered/Not Resolved]
  - Balance disorder [Not Recovered/Not Resolved]
  - Hypoaesthesia [Not Recovered/Not Resolved]
  - Musculoskeletal pain [Not Recovered/Not Resolved]
  - Neck pain [Not Recovered/Not Resolved]
  - Anxiety [Unknown]
  - Depression [Unknown]
  - Hypertension [Not Recovered/Not Resolved]
  - Blood glucose increased [Not Recovered/Not Resolved]
  - Inappropriate schedule of drug administration [Unknown]
